FAERS Safety Report 5484361-0 (Version None)
Quarter: 2007Q4

REPORT INFORMATION
  Report Type: 
  Country: None (occurrence: None)
  Receive Date: 20071010
  Receipt Date: 20070927
  Transmission Date: 20080405
  Serious: Yes (Hospitalization)
  Sender: FDA-Public Use
  Company Number: 2007BI018703

PATIENT
  Age: 47 Year
  Sex: Female
  Weight: 108.8633 kg

DRUGS (3)
  1. AVONEX [Suspect]
     Indication: MULTIPLE SCLEROSIS
     Dosage: 30 UG;QW;IM
     Route: 030
     Dates: start: 19971001, end: 20030801
  2. AVONEX [Suspect]
     Indication: MULTIPLE SCLEROSIS
     Dosage: 30 UG;QW;IM
     Route: 030
     Dates: start: 20030801
  3. NEURONTIN [Concomitant]

REACTIONS (9)
  - GAIT DISTURBANCE [None]
  - ILL-DEFINED DISORDER [None]
  - LIMB INJURY [None]
  - MASS [None]
  - MUSCLE INJURY [None]
  - NERVE INJURY [None]
  - OEDEMA PERIPHERAL [None]
  - PAIN [None]
  - PAIN IN EXTREMITY [None]
